FAERS Safety Report 6861202-8 (Version None)
Quarter: 2010Q3

REPORT INFORMATION
  Report Type: 
  Country: None (occurrence: None)
  Receive Date: 20100720
  Receipt Date: 20100706
  Transmission Date: 20110219
  Serious: Yes (Other)
  Sender: FDA-Public Use
  Company Number: US-ELI_LILLY_AND_COMPANY-US200911003534

PATIENT
  Sex: Female

DRUGS (12)
  1. CYMBALTA [Suspect]
     Indication: ANXIETY
     Dosage: 60 MG, DAILY (1/D)
     Route: 048
  2. CYMBALTA [Suspect]
     Dosage: 30 MG, OTHER
     Route: 048
  3. CYMBALTA [Suspect]
     Dosage: 30 MG, OTHER
     Route: 048
  4. CYMBALTA [Suspect]
     Dosage: 20 MG, DAILY (1/D)
  5. CYMBALTA [Suspect]
     Dosage: 60 MG, DAILY (1/D)
  6. XANAX [Concomitant]
     Dosage: 0.5 MG, 2/D
     Dates: start: 20090707
  7. GABAPENTIN [Concomitant]
     Dosage: 300 MG, 3/D
     Dates: start: 20090521
  8. KENALOG [Concomitant]
     Dosage: 80 MG, UNK
  9. XYZAL [Concomitant]
     Dosage: 5 MG, DAILY (1/D)
  10. ALBUTEROL [Concomitant]
     Dosage: 2 D/F, 4/D
  11. EXCEDRIN (MIGRAINE) [Concomitant]
  12. ADVIL COLD AND SINUS [Concomitant]
     Dosage: 1 D/F, UNK

REACTIONS (16)
  - ANXIETY [None]
  - CONFUSIONAL STATE [None]
  - DRUG INEFFECTIVE [None]
  - DRUG WITHDRAWAL SYNDROME [None]
  - EMOTIONAL DISTRESS [None]
  - FATIGUE [None]
  - HEADACHE [None]
  - INTENTIONAL DRUG MISUSE [None]
  - MENTAL IMPAIRMENT [None]
  - MUSCLE SPASMS [None]
  - NAUSEA [None]
  - NEURALGIA [None]
  - NEUROPATHY PERIPHERAL [None]
  - SUICIDAL IDEATION [None]
  - UNEVALUABLE EVENT [None]
  - VOMITING [None]
